FAERS Safety Report 4456671-7 (Version None)
Quarter: 2004Q3

REPORT INFORMATION
  Report Type: 
  Country: None (occurrence: None)
  Receive Date: 20040923
  Receipt Date: 20040901
  Transmission Date: 20050211
  Serious: Yes (Hospitalization, Other)
  Sender: FDA-Public Use
  Company Number: 200416625US

PATIENT
  Age: 60 Year
  Sex: Female

DRUGS (9)
  1. DOCETAXEL [Suspect]
     Indication: NON-SMALL CELL LUNG CANCER
     Route: 042
     Dates: end: 20040816
  2. CARBOPLATIN [Suspect]
     Indication: NON-SMALL CELL LUNG CANCER
     Route: 042
     Dates: end: 20040816
  3. RADIATION THERAPY [Suspect]
     Indication: NON-SMALL CELL LUNG CANCER
     Dosage: DOSE: 1.8 GY
     Dates: start: 20040719, end: 20040825
  4. PREDNISONE [Concomitant]
  5. ALBUTEROL [Concomitant]
     Route: 055
  6. ATROVENT [Concomitant]
     Route: 055
  7. ACTIQ [Concomitant]
  8. NEXIUM [Concomitant]
  9. DECADRON [Concomitant]

REACTIONS (27)
  - ANAEMIA [None]
  - ANEURYSM [None]
  - BLOOD CHLORIDE DECREASED [None]
  - BLOOD POTASSIUM DECREASED [None]
  - BLOOD PRESSURE SYSTOLIC DECREASED [None]
  - CRANIAL NERVE PARALYSIS [None]
  - CRANIAL NEUROPATHY [None]
  - DEHYDRATION [None]
  - DIPLOPIA [None]
  - DYSPHAGIA [None]
  - EYE DISORDER [None]
  - EYE MOVEMENT DISORDER [None]
  - FATIGUE [None]
  - HEART RATE INCREASED [None]
  - HYPERSOMNIA [None]
  - IIIRD NERVE PARALYSIS [None]
  - INFECTION [None]
  - JAUNDICE [None]
  - LACRIMATION INCREASED [None]
  - METASTASES TO MUSCLE [None]
  - METASTASES TO PANCREAS [None]
  - METASTASES TO PERITONEUM [None]
  - NEUROPATHY [None]
  - PLATELET COUNT DECREASED [None]
  - PUPILS UNEQUAL [None]
  - RESPIRATORY RATE INCREASED [None]
  - VISION BLURRED [None]
